FAERS Safety Report 8080197-5 (Version None)
Quarter: 2012Q1

REPORT INFORMATION
  Report Type: 
  Country: None (occurrence: None)
  Receive Date: 20120130
  Receipt Date: 20110714
  Transmission Date: 20120608
  Serious: Yes (Other)
  Sender: FDA-Public Use
  Company Number: CA-GENZYME-MOZO-1000549

PATIENT
  Sex: Female
  Weight: 106.5 kg

DRUGS (9)
  1. MOZOBIL [Suspect]
     Indication: LYMPHOMA
  2. FILGRASTIM [Concomitant]
     Indication: HAEMATOPOIETIC STEM CELL MOBILISATION
     Dosage: 900 MCG, QD
     Route: 058
     Dates: start: 20110708, end: 20110713
  3. GRAVOL TAB [Concomitant]
     Indication: ABDOMINAL PAIN
  4. MOZOBIL [Suspect]
     Indication: HAEMATOPOIETIC STEM CELL MOBILISATION
     Dosage: 24 MG, QD
     Route: 058
     Dates: start: 20110711, end: 20110712
  5. VITAMIN D [Concomitant]
     Indication: SUPPLEMENTATION THERAPY
     Dosage: 1000 UNK, QD
  6. HYDROCORTISONE [Concomitant]
     Indication: PRODUCT USED FOR UNKNOWN INDICATION
     Dosage: 100 MG, UNK
     Route: 042
  7. ACETAMINOPHEN [Concomitant]
     Indication: PAIN
     Dosage: 650 MG, PRN
     Route: 048
     Dates: start: 20110713, end: 20110713
  8. METFFORMIN HYDROCHLORIDE [Concomitant]
     Indication: DIABETES MELLITUS
     Dosage: 1000 MG, QD
     Route: 048
  9. GRAVOL TAB [Concomitant]
     Indication: NAUSEA
     Dosage: 50 MG, UNK
     Route: 042
     Dates: start: 20110711, end: 20110713

REACTIONS (6)
  - DIZZINESS [None]
  - HYPOTENSION [None]
  - ABDOMINAL PAIN [None]
  - PALLOR [None]
  - FEELING HOT [None]
  - HYPERHIDROSIS [None]
